FAERS Safety Report 17458500 (Version 1)
Quarter: 2020Q1

REPORT INFORMATION
  Report Type: Spontaneous
  Country: FR (occurrence: FR)
  Receive Date: 20200225
  Receipt Date: 20200225
  Transmission Date: 20200409
  Serious: Yes (Other)
  Sender: FDA-Public Use
  Company Number: FR-MYLANLABS-2020M1020011

PATIENT
  Age: 39 Year
  Sex: Male
  Weight: 77 kg

DRUGS (7)
  1. RISORDAN                           /07346501/ [Suspect]
     Active Substance: ISOSORBIDE DINITRATE
     Indication: ANGIOCARDIOGRAM
     Dosage: 1 MILLIGRAM, QD
     Route: 013
     Dates: start: 20190221, end: 20190221
  2. BRILIQUE [Concomitant]
     Active Substance: TICAGRELOR
     Dosage: UNK
  3. VISIPAQUE [Suspect]
     Active Substance: IODIXANOL
     Indication: ANGIOCARDIOGRAM
     Dosage: 50 MILLILITER, QD
     Route: 013
     Dates: start: 20190221, end: 20190221
  4. ASPEGIC                            /00002701/ [Concomitant]
     Active Substance: ASPIRIN
     Dosage: UNK
  5. BISOPROLOL HEMIFUMARATE [Concomitant]
     Active Substance: BISOPROLOL FUMARATE
     Dosage: UNK
  6. ISOPTINE [Suspect]
     Active Substance: VERAPAMIL HYDROCHLORIDE
     Indication: ANGIOCARDIOGRAM
     Dosage: 2.5 MILLIGRAM, QD
     Route: 042
     Dates: start: 20190221, end: 20190221
  7. HEPARINE                           /00027701/ [Suspect]
     Active Substance: HEPARIN SODIUM
     Indication: ANGIOCARDIOGRAM
     Dosage: 3000 INTERNATIONAL UNIT, QD
     Route: 042
     Dates: start: 20190221, end: 20190221

REACTIONS (2)
  - Rash erythematous [Recovered/Resolved]
  - Pruritus [Recovered/Resolved]

NARRATIVE: CASE EVENT DATE: 20190222
